FAERS Safety Report 9252330 (Version 1)
Quarter: 2013Q2

REPORT INFORMATION
  Report Type: Report from Study
  Country: DE (occurrence: DE)
  Receive Date: 20130424
  Receipt Date: 20130424
  Transmission Date: 20140414
  Serious: Yes (Other)
  Sender: FDA-Public Use
  Company Number: DE-US-EMD SERONO, INC.-7206880

PATIENT
  Age: 51 Year
  Sex: Female

DRUGS (2)
  1. REBIF [Suspect]
     Indication: MULTIPLE SCLEROSIS
     Route: 058
     Dates: start: 2000, end: 20130318
  2. REBIF [Suspect]
     Route: 058
     Dates: start: 20130417

REACTIONS (6)
  - Circulatory collapse [Recovered/Resolved]
  - Multiple sclerosis relapse [Unknown]
  - Vomiting [Recovered/Resolved]
  - Sleep disorder [Recovered/Resolved]
  - Pain in extremity [Recovered/Resolved]
  - Chills [Recovered/Resolved]
